FAERS Safety Report 9491094 (Version 1)
Quarter: 2013Q3

REPORT INFORMATION
  Report Type: Spontaneous
  Country: PH (occurrence: PH)
  Receive Date: 20130830
  Receipt Date: 20130830
  Transmission Date: 20140515
  Serious: Yes (Hospitalization)
  Sender: FDA-Public Use
  Company Number: PH-009507513-1308PHL013602

PATIENT
  Age: 70 Year
  Sex: Female

DRUGS (1)
  1. COZAAR [Suspect]
     Indication: ROUTINE HEALTH MAINTENANCE
     Dosage: 1 TABLET ONCE A DAY,100 MG
     Route: 048

REACTIONS (4)
  - Pelvic fracture [Unknown]
  - Fall [Unknown]
  - Diabetes mellitus [Unknown]
  - Blood cholesterol increased [Unknown]
